FAERS Safety Report 5213016-2 (Version None)
Quarter: 2007Q1

REPORT INFORMATION
  Report Type: 
  Country: None (occurrence: None)
  Receive Date: 20070117
  Receipt Date: 20070117
  Transmission Date: 20070707
  Serious: Yes (Hospitalization, Disabling)
  Sender: FDA-Public Use
  Company Number: None

PATIENT
  Age: 54 Year
  Sex: Male
  Weight: 117.9352 kg

DRUGS (2)
  1. TRASYLOL [Suspect]
     Indication: CARDIAC OPERATION
  2. TRASYLOL [Suspect]
     Indication: CARDIAC OPERATION

REACTIONS (12)
  - BRADYCARDIA [None]
  - CARDIAC DISORDER [None]
  - CHEST PAIN [None]
  - CORONARY ARTERY DISEASE [None]
  - FEELING ABNORMAL [None]
  - GOUT [None]
  - HYPOTENSION [None]
  - IMPAIRED DRIVING ABILITY [None]
  - MYOCARDIAL INFARCTION [None]
  - NEPHROLITHIASIS [None]
  - POST PROCEDURAL COMPLICATION [None]
  - PRESYNCOPE [None]
